FAERS Safety Report 7929626-5 (Version None)
Quarter: 2011Q4

REPORT INFORMATION
  Report Type: 
  Country: None (occurrence: None)
  Receive Date: 20111121
  Receipt Date: 20111110
  Transmission Date: 20120403
  Serious: Yes (Hospitalization)
  Sender: FDA-Public Use
  Company Number: CA-JNJFOC-20111104372

PATIENT
  Sex: Female
  Weight: 82.3 kg

DRUGS (6)
  1. REMICADE [Suspect]
     Indication: CROHN'S DISEASE
  2. IMURAN [Concomitant]
  3. VENLAFAXINE [Concomitant]
  4. REACTINE [Concomitant]
  5. BRICANYL [Concomitant]
  6. FLONASE [Concomitant]

REACTIONS (4)
  - VOMITING [None]
  - DEHYDRATION [None]
  - NAUSEA [None]
  - MATERNAL EXPOSURE DURING PREGNANCY [None]
